FAERS Safety Report 5477193-0 (Version None)
Quarter: 2007Q4

REPORT INFORMATION
  Report Type: 
  Country: None (occurrence: None)
  Receive Date: 20071004
  Receipt Date: 20070928
  Transmission Date: 20080405
  Serious: Yes (Hospitalization)
  Sender: FDA-Public Use
  Company Number: B0482390A

PATIENT
  Age: 63 Year
  Sex: Female
  Weight: 65.4 kg

DRUGS (2)
  1. LAPATINIB [Suspect]
     Dosage: 1250MG PER DAY
     Route: 048
     Dates: start: 20070215, end: 20070727
  2. CAPECITABINE [Suspect]
     Dosage: 1300MG TWICE PER DAY
     Route: 048
     Dates: start: 20070719, end: 20070727

REACTIONS (5)
  - ANOREXIA [None]
  - DEHYDRATION [None]
  - DIARRHOEA [None]
  - DYSPNOEA [None]
  - EFFUSION [None]
